FAERS Safety Report 13369359 (Version 3)
Quarter: 2017Q2

REPORT INFORMATION
  Report Type: Report from Study
  Country: KR (occurrence: KR)
  Receive Date: 20170324
  Receipt Date: 20170405
  Transmission Date: 20170830
  Serious: Yes (Hospitalization, Other)
  Sender: FDA-Public Use
  Company Number: KR-B.I. PHARMACEUTICALS,INC./RIDGEFIELD-2016-BI-43408RK

PATIENT
  Age: 65 Year
  Sex: Female
  Weight: 48 kg

DRUGS (7)
  1. DOCETAXEL. [Concomitant]
     Active Substance: DOCETAXEL
     Dosage: 60MG/M2
     Route: 042
  2. BIBF 1120 [Suspect]
     Active Substance: NINTEDANIB
     Indication: NON-SMALL CELL LUNG CANCER
     Route: 048
     Dates: start: 20160406
  3. BIBF 1120 [Suspect]
     Active Substance: NINTEDANIB
     Route: 048
     Dates: end: 20170302
  4. BIBF 1120 [Suspect]
     Active Substance: NINTEDANIB
     Route: 048
     Dates: start: 20160615
  5. DOCETAXEL. [Concomitant]
     Active Substance: DOCETAXEL
     Route: 042
     Dates: start: 20160511, end: 20161223
  6. DOCETAXEL. [Concomitant]
     Active Substance: DOCETAXEL
     Indication: NON-SMALL CELL LUNG CANCER
     Dosage: 75MG/M2
     Route: 042
     Dates: start: 20160405, end: 20160422
  7. BIBF 1120 [Suspect]
     Active Substance: NINTEDANIB
     Route: 048
     Dates: start: 20161006

REACTIONS (4)
  - Pleural effusion [Recovered/Resolved]
  - Malignant neoplasm progression [Not Recovered/Not Resolved]
  - Pleural effusion [Recovered/Resolved]
  - Liver function test increased [Recovered/Resolved]

NARRATIVE: CASE EVENT DATE: 20160629
